FAERS Safety Report 5920431-8 (Version None)
Quarter: 2008Q4

REPORT INFORMATION
  Report Type: 
  Country: None (occurrence: None)
  Receive Date: 20081016
  Receipt Date: 20081002
  Transmission Date: 20090506
  Serious: Yes (Other)
  Sender: FDA-Public Use
  Company Number: GR-ELI_LILLY_AND_COMPANY-GR200810000736

PATIENT
  Age: 68 Year
  Sex: Female

DRUGS (2)
  1. FORTEO [Suspect]
     Indication: OSTEOPOROSIS
     Dosage: 20 UG, DAILY (1/D)
     Route: 058
     Dates: start: 20051101, end: 20070401
  2. SOLOSA [Concomitant]
     Indication: DIABETES MELLITUS
     Dosage: 3 MG, DAILY (1/D)
     Route: 048

REACTIONS (2)
  - HYPERCALCIURIA [None]
  - HYPERPARATHYROIDISM [None]
